FAERS Safety Report 4685441-X (Version None)
Quarter: 2005Q2

REPORT INFORMATION
  Report Type: 
  Country: None (occurrence: None)
  Receive Date: 20050608
  Receipt Date: 20050601
  Transmission Date: 20051028
  Serious: Yes (Other)
  Sender: FDA-Public Use
  Company Number: PHBS2005JP08030

PATIENT
  Age: 56 Year
  Sex: Female

DRUGS (1)
  1. DIOVAN [Suspect]
     Dosage: 40 MG, QD
     Route: 048
     Dates: start: 20050413, end: 20050414

REACTIONS (3)
  - HEADACHE [None]
  - MALAISE [None]
  - VOMITING [None]
